FAERS Safety Report 8019452-3 (Version None)
Quarter: 2012Q1

REPORT INFORMATION
  Report Type: 
  Country: None (occurrence: None)
  Receive Date: 20120103
  Receipt Date: 20111229
  Transmission Date: 20120608
  Serious: Yes (Hospitalization)
  Sender: FDA-Public Use
  Company Number: PHEH2011US012733

PATIENT
  Age: 52 Year
  Sex: Female

DRUGS (4)
  1. NORVASC [Concomitant]
     Dosage: UNK
  2. METFORMIN MIXTURE [Concomitant]
  3. VALTURNA [Suspect]
     Dosage: 1 DF(300/320 MG), DAILY
  4. ANALGESICS [Concomitant]

REACTIONS (3)
  - DEHYDRATION [None]
  - VOMITING [None]
  - DIARRHOEA [None]
